FAERS Safety Report 7600414-2 (Version None)
Quarter: 2011Q2

REPORT INFORMATION
  Report Type: 
  Country: None (occurrence: None)
  Receive Date: 20110629
  Receipt Date: 20110615
  Transmission Date: 20111010
  Serious: Yes (Hospitalization)
  Sender: FDA-Public Use
  Company Number: AUR-APL-2011-03098

PATIENT
  Age: 71 Year
  Sex: Male

DRUGS (2)
  1. CANDESARAN [Concomitant]
  2. SIMVASTATIN [Suspect]
     Indication: HYPERCHOLESTEROLAEMIA
     Dosage: 40 MG, ORAL
     Route: 048
     Dates: start: 20110305, end: 20110523

REACTIONS (4)
  - DIARRHOEA [None]
  - HYPOTENSION [None]
  - VOMITING [None]
  - RENAL IMPAIRMENT [None]
